FAERS Safety Report 12201181 (Version 1)
Quarter: 2016Q1

REPORT INFORMATION
  Report Type: Spontaneous
  Country: US (occurrence: US)
  Receive Date: 20160322
  Receipt Date: 20160322
  Transmission Date: 20160526
  Serious: No
  Sender: FDA-Public Use
  Company Number: US-SA-2015SA057749

PATIENT
  Age: 72 Year
  Sex: Female

DRUGS (4)
  1. NASACORT ALLERGY 24HR [Suspect]
     Active Substance: TRIAMCINOLONE ACETONIDE
     Indication: SEASONAL ALLERGY
     Dosage: START DATE: LATE MARCH 2015?STOP DATE: EARLY MAY 2015?FORM: NASAL SPRAY
     Route: 045
     Dates: start: 201503, end: 201505
  2. NASACORT ALLERGY 24HR [Suspect]
     Active Substance: TRIAMCINOLONE ACETONIDE
     Indication: MULTIPLE ALLERGIES
     Dosage: START DATE: LATE MARCH 2015?STOP DATE: EARLY MAY 2015?FORM: NASAL SPRAY
     Route: 045
     Dates: start: 201503, end: 201505
  3. NASACORT ALLERGY 24HR [Suspect]
     Active Substance: TRIAMCINOLONE ACETONIDE
     Indication: RHINORRHOEA
     Dosage: START DATE: LATE MARCH 2015?STOP DATE: EARLY MAY 2015?FORM: NASAL SPRAY
     Route: 045
     Dates: start: 201503, end: 201505
  4. NASACORT ALLERGY 24HR [Suspect]
     Active Substance: TRIAMCINOLONE ACETONIDE
     Indication: SNEEZING
     Dosage: START DATE: LATE MARCH 2015?STOP DATE: EARLY MAY 2015?FORM: NASAL SPRAY
     Route: 045
     Dates: start: 201503, end: 201505

REACTIONS (1)
  - Drug ineffective [Unknown]
